FAERS Safety Report 6019322-6 (Version None)
Quarter: 2008Q4

REPORT INFORMATION
  Report Type: 
  Country: None (occurrence: None)
  Receive Date: 20081224
  Receipt Date: 20081218
  Transmission Date: 20090506
  Serious: Yes (Death)
  Sender: FDA-Public Use
  Company Number: US-JNJFOC-20081205647

PATIENT
  Age: 19 Year
  Sex: Female

DRUGS (4)
  1. ACETAMINOPHEN [Suspect]
  2. ACETAMINOPHEN [Suspect]
     Indication: SUICIDE ATTEMPT
  3. ACETAMINOPHEN/DIPHENHYDRAMINE [Suspect]
     Indication: SUICIDE ATTEMPT
  4. FLUOXETINE [Suspect]
     Indication: SUICIDE ATTEMPT

REACTIONS (2)
  - DRUG ADMINISTRATION ERROR [None]
  - DRUG TOXICITY [None]
